FAERS Safety Report 4336261-7 (Version None)
Quarter: 2004Q2

REPORT INFORMATION
  Report Type: 
  Country: None (occurrence: None)
  Receive Date: 20040407
  Receipt Date: 20040322
  Transmission Date: 20050107
  Serious: Yes (Hospitalization)
  Sender: FDA-Public Use
  Company Number: EWC040338564

PATIENT
  Sex: Female

DRUGS (6)
  1. ZYPREXA VELOTAB-DISPERSIBLE (OLANZAPINE) [Suspect]
     Dosage: 80 MG
     Dates: start: 20031016, end: 20031227
  2. DEPAKENE [Concomitant]
  3. PYSCHOPAX (DIAZEPAM) [Concomitant]
  4. AKINETON [Concomitant]
  5. MOVICOL [Concomitant]
  6. NOZINAN (LEVOMEPROMAZINE) [Concomitant]

REACTIONS (1)
  - DELIRIUM [None]
